FAERS Safety Report 5164701-2 (Version None)
Quarter: 2006Q4

REPORT INFORMATION
  Report Type: 
  Country: None (occurrence: None)
  Receive Date: 20061205
  Receipt Date: 20061127
  Transmission Date: 20070319
  Serious: Yes (Hospitalization)
  Sender: FDA-Public Use
  Company Number: US-ELI_LILLY_AND_COMPANY-US200611005054

PATIENT
  Age: 63 Year
  Sex: Male

DRUGS (4)
  1. HUMULIN 70/30 [Suspect]
     Indication: DIABETES MELLITUS NON-INSULIN-DEPENDENT
     Dosage: 180 U, DAILY (1/D)
     Dates: start: 19910101
  2. HUMULIN 70/30 [Suspect]
     Dosage: 20 U, OTHER
     Dates: start: 19910101, end: 20060101
  3. HUMULIN 70/30 [Suspect]
     Dosage: 80 U, EACH EVENING
     Dates: start: 19910101, end: 20060101
  4. HUMULIN 50% REGULAR, 50% NPH [Suspect]
     Indication: DIABETES MELLITUS NON-INSULIN-DEPENDENT
     Dosage: 140 U, DAILY (1/D)
     Dates: start: 20060101

REACTIONS (4)
  - DRUG EFFECT DECREASED [None]
  - GANGRENE [None]
  - INJURY [None]
  - SKIN DISCOLOURATION [None]
